FAERS Safety Report 7059809-0 (Version None)
Quarter: 2010Q4

REPORT INFORMATION
  Report Type: 
  Country: None (occurrence: None)
  Receive Date: 20101025
  Receipt Date: 20101013
  Transmission Date: 20110411
  Serious: Yes (Other)
  Sender: FDA-Public Use
  Company Number: US-PFIZER INC-2010130781

PATIENT
  Sex: Female
  Weight: 61.224 kg

DRUGS (3)
  1. DETROL LA [Suspect]
     Indication: POLLAKIURIA
     Dosage: 4 MG, DAILY
     Route: 048
  2. DETROL LA [Suspect]
     Indication: BLADDER DISORDER
  3. LORAZEPAM [Concomitant]
     Dosage: UNK

REACTIONS (3)
  - ESCHERICHIA INFECTION [None]
  - HAEMORRHAGE [None]
  - URINARY TRACT INFECTION [None]
